FAERS Safety Report 8621370-4 (Version None)
Quarter: 2012Q3

REPORT INFORMATION
  Report Type: 
  Country: None (occurrence: None)
  Receive Date: 20120824
  Receipt Date: 20120820
  Transmission Date: 20120928
  Serious: Yes (Death, Life-Threatening, Hospitalization, Other)
  Sender: FDA-Public Use
  Company Number: FR-ASTRAZENECA-2012SE60446

PATIENT
  Age: 12633 Day
  Sex: Male

DRUGS (5)
  1. VALIUM [Suspect]
     Route: 048
     Dates: start: 20120601, end: 20120625
  2. SEROQUEL [Suspect]
     Indication: PSYCHOTIC DISORDER
     Route: 048
     Dates: start: 20120605, end: 20120625
  3. LOXAPINE HCL [Suspect]
     Indication: AGGRESSION
     Route: 048
     Dates: start: 20120614, end: 20120625
  4. DEPAKINE [Suspect]
     Route: 048
     Dates: start: 20120601, end: 20120625
  5. LEPTICUR [Suspect]
     Route: 048
     Dates: start: 20120605, end: 20120625

REACTIONS (10)
  - INTESTINAL OBSTRUCTION [None]
  - GASTROINTESTINAL NECROSIS [None]
  - MULTI-ORGAN FAILURE [None]
  - SHOCK HAEMORRHAGIC [None]
  - SEPTIC SHOCK [None]
  - PSEUDOMONAS INFECTION [None]
  - CARDIAC ARREST [None]
  - CANDIDIASIS [None]
  - INTESTINAL ISCHAEMIA [None]
  - STAPHYLOCOCCAL ABSCESS [None]
